FAERS Safety Report 10662681 (Version 1)
Quarter: 2014Q4

REPORT INFORMATION
  Report Type: Spontaneous
  Country: RU (occurrence: RU)
  Receive Date: 20141218
  Receipt Date: 20141218
  Transmission Date: 20150529
  Serious: Yes (Life-Threatening)
  Sender: FDA-Public Use
  Company Number: RU-PFIZER INC-2014349287

PATIENT
  Sex: Female

DRUGS (1)
  1. JAQINUS [Suspect]
     Active Substance: TOFACITINIB CITRATE

REACTIONS (1)
  - Pulmonary embolism [Unknown]

NARRATIVE: CASE EVENT DATE: 20141217
